FAERS Safety Report 6430815-X (Version None)
Quarter: 2009Q4

REPORT INFORMATION
  Report Type: 
  Country: None (occurrence: None)
  Receive Date: 20091104
  Receipt Date: 20091021
  Transmission Date: 20100525
  Serious: Yes (Death, Hospitalization)
  Sender: FDA-Public Use
  Company Number: 2009-04167

PATIENT
  Age: 81 Year
  Sex: Female
  Weight: 65.3 kg

DRUGS (10)
  1. VELCADE [Suspect]
     Indication: MULTIPLE MYELOMA
     Dosage: 1.6 MG/M2, INTRAVENOUS
     Route: 042
     Dates: start: 20090910, end: 20090928
  2. MELPHALAN HYDROCHLORIDE [Suspect]
     Indication: MULTIPLE MYELOMA
     Dosage: 9 MG/M2
     Dates: start: 20090910, end: 20090928
  3. PREDNISONE TAB [Suspect]
     Indication: MULTIPLE MYELOMA
     Dosage: 100 MG, ORAL
     Route: 048
  4. PREVACID [Concomitant]
  5. CALCIUM (CALCIUM) [Concomitant]
  6. CLARITIN [Concomitant]
  7. HYDROCODONE (HYDROCODONE) [Concomitant]
  8. MULTIVITAMIN [Concomitant]
  9. ASCORBIC ACID [Concomitant]
  10. VITAMIN E [Concomitant]

REACTIONS (8)
  - ABDOMINAL DISCOMFORT [None]
  - BLOOD PRESSURE DIASTOLIC DECREASED [None]
  - CARDIAC FAILURE ACUTE [None]
  - CONDITION AGGRAVATED [None]
  - CONGESTIVE CARDIOMYOPATHY [None]
  - DECREASED APPETITE [None]
  - DIZZINESS POSTURAL [None]
  - NAUSEA [None]
